FAERS Safety Report 5251795-9 (Version None)
Quarter: 2007Q1

REPORT INFORMATION
  Report Type: 
  Country: None (occurrence: None)
  Receive Date: 20070228
  Receipt Date: 20070220
  Transmission Date: 20070707
  Serious: Yes (Other)
  Sender: FDA-Public Use
  Company Number: CA-PFIZER INC-2007013734

PATIENT
  Age: 55 Year
  Sex: Female

DRUGS (2)
  1. NORVASC [Suspect]
     Route: 048
  2. NORVASC [Suspect]
     Dosage: DAILY DOSE:10MG-FREQ:DAILY
     Route: 048

REACTIONS (4)
  - BLINDNESS [None]
  - HYPOAESTHESIA [None]
  - MIGRAINE [None]
  - TINNITUS [None]
